FAERS Safety Report 4422345-1 (Version None)
Quarter: 2004Q3

REPORT INFORMATION
  Report Type: 
  Country: None (occurrence: None)
  Receive Date: 20040810
  Receipt Date: 20040804
  Transmission Date: 20050211
  Serious: Yes (Other)
  Sender: FDA-Public Use
  Company Number: US-BRISTOL-MYERS SQUIBB COMPANY-12661765

PATIENT
  Sex: Male

DRUGS (1)
  1. EXCEDRIN (MIGRAINE) [Suspect]
     Indication: MIGRAINE
     Dosage: TOOK EXCEDRIN MIGRAINE FOR THE PAST 5 1/2 YEARS AND FOR THE PAST 5 YEARS HAS BEEN ^HOOKED.^
     Dates: start: 19980101

REACTIONS (2)
  - DEPENDENCE [None]
  - HEADACHE [None]
